FAERS Safety Report 9846519 (Version 1)
Quarter: 2014Q1

REPORT INFORMATION
  Report Type: Spontaneous
  Country: FR (occurrence: FR)
  Receive Date: 20140127
  Receipt Date: 20140127
  Transmission Date: 20141002
  Serious: Yes (Hospitalization)
  Sender: FDA-Public Use
  Company Number: FR-WATSON-2013-24675

PATIENT
  Age: 69 Year
  Sex: Male
  Weight: 85 kg

DRUGS (6)
  1. VALPROIC ACID [Suspect]
     Indication: EPILEPSY
     Dosage: 1000 MG, DAILY - LONG TERM
     Route: 048
  2. KARDEGIC [Suspect]
     Indication: PROPHYLAXIS
     Dosage: 75 MG, DAILY - LONG TERM
     Route: 048
  3. SOTALOL [Suspect]
     Indication: HYPERTENSION
     Dosage: 80 MG, DAILY -LONG TERM
     Route: 048
  4. SIMVASTATIN [Suspect]
     Indication: PROPHYLAXIS
     Dosage: 20 MG, DAILY - LONG TERM
     Route: 048
  5. CARTEOL LP 2% COLLYRE A LIBERATION PROLONGEE [Suspect]
     Indication: CATARACT
     Dosage: UNK, UNKNOWN - LONG TERM
     Route: 047
  6. RAMIPRIL [Suspect]
     Indication: HYPERTENSION
     Dosage: 2.5 MG, DAILY - LONG TERM
     Route: 048

REACTIONS (4)
  - Renal failure acute [Recovered/Resolved]
  - Epilepsy [Recovered/Resolved]
  - Malaise [Recovered/Resolved]
  - Underdose [Recovered/Resolved]
